FAERS Safety Report 8369255-5 (Version None)
Quarter: 2012Q2

REPORT INFORMATION
  Report Type: 
  Country: None (occurrence: None)
  Receive Date: 20120518
  Receipt Date: 20120515
  Transmission Date: 20120825
  Serious: Yes (Other)
  Sender: FDA-Public Use
  Company Number: US-BAYER-2012-031168

PATIENT
  Sex: Female
  Weight: 66 kg

DRUGS (4)
  1. ADDERALL 5 [Concomitant]
     Indication: MULTIPLE SCLEROSIS
     Dosage: 20 TWICE DAILY
  2. BETASERON [Suspect]
     Indication: RELAPSING-REMITTING MULTIPLE SCLEROSIS
     Dosage: 0.25 MG, QOD AT NIGHT
     Route: 058
     Dates: start: 19970301
  3. MELOXICAM [Concomitant]
     Indication: MULTIPLE SCLEROSIS
     Dosage: 15 EVERY DAY
  4. SYNTHROID [Concomitant]
     Indication: HYPOTHYROIDISM
     Dosage: 100 EVERY MORNING

REACTIONS (1)
  - MALIGNANT MELANOMA [None]
